FAERS Safety Report 23362695 (Version 1)
Quarter: 2024Q1

REPORT INFORMATION
  Report Type: Spontaneous
  Country: US (occurrence: None)
  Receive Date: 20240102
  Receipt Date: 20240102
  Transmission Date: 20240410
  Serious: Yes (Other)
  Sender: FDA-Public Use
  Company Number: None

PATIENT
  Age: 50 Year
  Sex: Female
  Weight: 63.05 kg

DRUGS (1)
  1. WEGOVY [Suspect]
     Active Substance: SEMAGLUTIDE
     Indication: Weight decreased
     Dosage: 2.4 GRAM(S) INTRADERMAL
     Route: 023
     Dates: start: 20240101

REACTIONS (4)
  - Diarrhoea [None]
  - Vomiting [None]
  - Renal pain [None]
  - Heart rate increased [None]

NARRATIVE: CASE EVENT DATE: 20230101
